FAERS Safety Report 9517446 (Version 2)
Quarter: 2013Q3

REPORT INFORMATION
  Report Type: Spontaneous
  Country: GB (occurrence: GB)
  Receive Date: 20130911
  Receipt Date: 20130926
  Transmission Date: 20140515
  Serious: Yes (Other)
  Sender: FDA-Public Use
  Company Number: GB-WATSON-2013-16302

PATIENT
  Age: 18 Year
  Sex: Female
  Weight: 54 kg

DRUGS (2)
  1. FLUOXETINE [Suspect]
     Indication: PRODUCT USED FOR UNKNOWN INDICATION
     Dosage: 20 MG, DAILY
     Route: 048
  2. CIRCADIN [Concomitant]
     Indication: PRODUCT USED FOR UNKNOWN INDICATION
     Dosage: UNK, UNKNOWN
     Route: 065

REACTIONS (10)
  - Somnolence [Recovered/Resolved]
  - Self-injurious ideation [Recovering/Resolving]
  - Decreased appetite [Recovering/Resolving]
  - Fear of weight gain [Recovering/Resolving]
  - Negative thoughts [Recovering/Resolving]
  - Drug ineffective [Unknown]
  - Product substitution issue [Unknown]
  - Abnormal behaviour [Recovering/Resolving]
  - Eating disorder [Recovering/Resolving]
  - Feeling abnormal [Recovering/Resolving]
